FAERS Safety Report 4514804-8 (Version None)
Quarter: 2004Q4

REPORT INFORMATION
  Report Type: 
  Country: None (occurrence: None)
  Receive Date: 20041126
  Receipt Date: 20041109
  Transmission Date: 20050328
  Serious: Yes (Life-Threatening)
  Sender: FDA-Public Use
  Company Number: 2004AP03805

PATIENT
  Age: 75 Year
  Sex: Female

DRUGS (10)
  1. IRESSA [Suspect]
     Indication: LUNG ADENOCARCINOMA
     Dosage: 250 MG DAILY PO
     Route: 048
     Dates: start: 20040625, end: 20040706
  2. IRESSA [Suspect]
     Indication: LUNG CARCINOMA CELL TYPE UNSPECIFIED RECURRENT
     Dosage: 250 MG DAILY PO
     Route: 048
     Dates: start: 20040625, end: 20040706
  3. ALLOID [Concomitant]
  4. NAUZELIN [Concomitant]
  5. DEPAKENE [Concomitant]
  6. DECADRON [Concomitant]
  7. MAGLAX [Concomitant]
  8. PACLITAXEL [Concomitant]
  9. CARBOPLATIN [Concomitant]
  10. RADIOTHERAPY [Concomitant]

REACTIONS (4)
  - CONDITION AGGRAVATED [None]
  - DEPRESSED LEVEL OF CONSCIOUSNESS [None]
  - INAPPROPRIATE ANTIDIURETIC HORMONE SECRETION [None]
  - RESPIRATORY DISORDER [None]
